FAERS Safety Report 9518389 (Version 1)
Quarter: 2013Q1

REPORT INFORMATION
  Report Type: Spontaneous
  Country: US (occurrence: None)
  Receive Date: 20130305
  Receipt Date: 20130305
  Transmission Date: 20140127
  Serious: Yes (Hospitalization)
  Sender: FDA-Public Use
  Company Number: 163-21880-12081099

PATIENT
  Age: 80 Year
  Sex: Male

DRUGS (4)
  1. REVLIMID [Suspect]
     Indication: PLASMA CELL MYELOMA
     Dosage: 15 MG, 21 IN 21 D, PO?
     Route: 048
     Dates: start: 20100816
  2. PRADAXA (DABIGATRAN ETEXIALATE MESILATE) (UNKNOWN) [Concomitant]
  3. PLAVIX (CLOPIDOGREL SULFATE) (UNKNOWN) [Concomitant]
  4. KLOR-CON (POTASSIUM CHLORIDE) (UNKNOWN) [Concomitant]

REACTIONS (1)
  - Atrial fibrillation [None]
